FAERS Safety Report 6140861-1 (Version None)
Quarter: 2009Q2

REPORT INFORMATION
  Report Type: 
  Country: None (occurrence: None)
  Receive Date: 20090402
  Receipt Date: 20090219
  Transmission Date: 20091009
  Serious: No
  Sender: FDA-Public Use
  Company Number: US-KINGPHARMUSA00001-K200900183

PATIENT
  Sex: Female

DRUGS (2)
  1. SKELAXIN [Suspect]
     Indication: BACK PAIN
     Dosage: 800 MG, TID
     Route: 048
  2. SKELAXIN [Suspect]
     Indication: NECK PAIN

REACTIONS (1)
  - HEADACHE [None]
